FAERS Safety Report 9550955 (Version 2)
Quarter: 2014Q2

REPORT INFORMATION
  Report Type: Report from Study
  Country: US (occurrence: US)
  Receive Date: 20130924
  Receipt Date: 20140402
  Transmission Date: 20141212
  Serious: No
  Sender: FDA-Public Use
  Company Number: US-SANOFI-AVENTIS-2013SA050529

PATIENT
  Age: 45 Year
  Sex: Female

DRUGS (10)
  1. AUBAGIO [Suspect]
     Indication: MULTIPLE SCLEROSIS
     Route: 048
     Dates: start: 20130325
  2. AUBAGIO [Suspect]
     Indication: MULTIPLE SCLEROSIS
     Route: 048
     Dates: start: 20130325
  3. BENEFIBER [Concomitant]
     Dosage: DRINK MIX POWDER
  4. ALLEGRA [Concomitant]
  5. LEVOTHROID [Concomitant]
  6. IBUPROFEN [Concomitant]
  7. CITRACAL + D [Concomitant]
  8. FLEXERIL [Concomitant]
  9. MULTIVITAMINS [Concomitant]
  10. CRANBERRY EXTRACT [Concomitant]

REACTIONS (2)
  - Alopecia [Recovered/Resolved]
  - Nausea [Unknown]
